FAERS Safety Report 17907227 (Version 1)
Quarter: 2020Q2

REPORT INFORMATION
  Report Type: Spontaneous
  Country: US (occurrence: US)
  Receive Date: 20200617
  Receipt Date: 20200617
  Transmission Date: 20200714
  Serious: Yes (Death)
  Sender: FDA-Public Use
  Company Number: None

PATIENT
  Age: 88 Year
  Sex: Male
  Weight: 72.1 kg

DRUGS (8)
  1. REMDESIVIR. [Suspect]
     Active Substance: REMDESIVIR
     Indication: COVID-19
     Dates: start: 20200604, end: 20200608
  2. AMLODIPINE 2.5 MG PO DAILY [Concomitant]
     Dates: start: 20200603, end: 20200612
  3. LEVOTHYROXINE 112 MCG PO DAILY [Concomitant]
     Dates: end: 20200612
  4. ENOXAPAN^N 40 MG IV Q12H [Concomitant]
     Dates: start: 20200606, end: 20200612
  5. CYANOCOBALAMIN 1000 MCG PO DAILY [Concomitant]
     Dates: end: 20200612
  6. HYDROMORPHONE PCA [Concomitant]
     Active Substance: HYDROMORPHONE
     Dates: start: 20200611, end: 20200611
  7. CHOLECALCIFEROL TABLET 1000 UNITS PO DAILY [Concomitant]
     Dates: start: 20200604, end: 20200612
  8. DEXAMETHASONE 10 MG LV DAILY [Concomitant]
     Dates: start: 20200611, end: 20200612

REACTIONS (1)
  - Death [None]

NARRATIVE: CASE EVENT DATE: 20200612
